FAERS Safety Report 10554135 (Version 2)
Quarter: 2014Q4

REPORT INFORMATION
  Report Type: Spontaneous
  Country: US (occurrence: US)
  Receive Date: 20141030
  Receipt Date: 20141030
  Transmission Date: 20150529
  Serious: Yes (Death, Hospitalization, Other)
  Sender: FDA-Public Use
  Company Number: US-GLAXOSMITHKLINE-A0808585A

PATIENT
  Sex: Male

DRUGS (1)
  1. AVANDIA [Suspect]
     Active Substance: ROSIGLITAZONE MALEATE
     Indication: TYPE 2 DIABETES MELLITUS
     Dosage: 8 MG, QD
     Route: 048
     Dates: start: 200004, end: 200602

REACTIONS (9)
  - Respiratory failure [Unknown]
  - Pulmonary oedema [Unknown]
  - Arteriosclerosis coronary artery [Fatal]
  - Left ventricular dysfunction [Unknown]
  - Myocardial infarction [Fatal]
  - Ischaemic cardiomyopathy [Unknown]
  - Coronary artery disease [Unknown]
  - Pancreatitis [Fatal]
  - Cardiac failure congestive [Fatal]
